FAERS Safety Report 4451215-8 (Version None)
Quarter: 2004Q3

REPORT INFORMATION
  Report Type: 
  Country: None (occurrence: None)
  Receive Date: 20040914
  Receipt Date: 20040902
  Transmission Date: 20050211
  Serious: Yes (Life-Threatening, Hospitalization)
  Sender: FDA-Public Use
  Company Number: WAES 0402GBR00183

PATIENT
  Age: 70 Year
  Sex: Male
  Weight: 81.6475 kg

DRUGS (2)
  1. VIOXX [Suspect]
     Indication: NEOPLASM PROPHYLAXIS
     Dosage: 25 MG DAILY PO
     Route: 048
     Dates: start: 20030916, end: 20040214
  2. AMLODIPINE BESYLATE [Concomitant]

REACTIONS (5)
  - ATRIAL FIBRILLATION [None]
  - DYSPNOEA [None]
  - ELECTROCARDIOGRAM Q WAVE ABNORMAL [None]
  - FEELING ABNORMAL [None]
  - VENTRICULAR DYSFUNCTION [None]
